FAERS Safety Report 5409682-9 (Version None)
Quarter: 2007Q3

REPORT INFORMATION
  Report Type: 
  Country: None (occurrence: None)
  Receive Date: 20070808
  Receipt Date: 20070808
  Transmission Date: 20080115
  Serious: Yes (Hospitalization)
  Sender: FDA-Public Use
  Company Number: None

PATIENT
  Sex: Male
  Weight: 12.8 kg

DRUGS (4)
  1. DAUNORUBICIN HCL [Suspect]
  2. DEXAMETHASONE 0.5MG TAB [Suspect]
  3. METHOTREXATE [Suspect]
  4. VINCRISTINE SULFATE [Suspect]

REACTIONS (4)
  - LETHARGY [None]
  - PULMONARY HAEMORRHAGE [None]
  - SHOCK [None]
  - VOMITING [None]
